FAERS Safety Report 5800890-1 (Version None)
Quarter: 2008Q3

REPORT INFORMATION
  Report Type: 
  Country: None (occurrence: None)
  Receive Date: 20080701
  Receipt Date: 20080626
  Transmission Date: 20090109
  Serious: Yes (Death, Hospitalization)
  Sender: FDA-Public Use
  Company Number: 2008SP004343

PATIENT
  Age: 31 Year
  Sex: Female

DRUGS (3)
  1. PEG-INTRON [Suspect]
     Indication: DRUG USE FOR UNKNOWN INDICATION
     Dosage: 0.5 ML; QW; SC
     Route: 058
     Dates: start: 20061006, end: 20070907
  2. RIBAVIRIN [Suspect]
     Indication: DRUG USE FOR UNKNOWN INDICATION
     Dosage: 1200 MG; QD; PO
     Route: 048
     Dates: start: 20061006, end: 20070907
  3. AMPHETAMINE SULFATE [Concomitant]
     Indication: DRUG USE FOR UNKNOWN INDICATION
     Dosage: IV
     Route: 042

REACTIONS (6)
  - DRUG ABUSE [None]
  - ENDOCARDITIS [None]
  - MULTI-ORGAN FAILURE [None]
  - PULMONARY EMBOLISM [None]
  - SEPSIS [None]
  - STAPHYLOCOCCAL INFECTION [None]
